FAERS Safety Report 8385134-1 (Version None)
Quarter: 2012Q2

REPORT INFORMATION
  Report Type: 
  Country: None (occurrence: None)
  Receive Date: 20120524
  Receipt Date: 20120515
  Transmission Date: 20120825
  Serious: Yes (Life-Threatening, Hospitalization, Other)
  Sender: FDA-Public Use
  Company Number: US-BAXTER-2012BAX005635

PATIENT
  Sex: Male

DRUGS (2)
  1. INSULIN [Concomitant]
     Route: 058
  2. EXTRANEAL [Suspect]
     Route: 033

REACTIONS (3)
  - HYPOGLYCAEMIA [None]
  - BLOOD GLUCOSE ABNORMAL [None]
  - DEVICE INTERACTION [None]
